FAERS Safety Report 10228558 (Version 2)
Quarter: 2014Q2

REPORT INFORMATION
  Report Type: Spontaneous
  Country: US (occurrence: US)
  Receive Date: 20140610
  Receipt Date: 20140610
  Transmission Date: 20141212
  Serious: Yes (Death)
  Sender: FDA-Public Use
  Company Number: US-CELGENEUS-163-POMAL-14060047

PATIENT
  Age: 78 Year
  Sex: Female

DRUGS (2)
  1. POMALYST [Suspect]
     Indication: PLASMA CELL MYELOMA
     Dosage: 4 MILLIGRAM
     Route: 048
     Dates: start: 201403
  2. POMALYST [Suspect]
     Dosage: 4 MILLIGRAM
     Route: 048
     Dates: start: 20140529

REACTIONS (2)
  - Death [Fatal]
  - Plasma cell myeloma [Unknown]
